FAERS Safety Report 9511863 (Version 1)
Quarter: 2013Q1

REPORT INFORMATION
  Report Type: Spontaneous
  Country: US (occurrence: None)
  Receive Date: 20130305
  Receipt Date: 20130305
  Transmission Date: 20140127
  Serious: Yes (Other)
  Sender: FDA-Public Use
  Company Number: 163-21880-12103575

PATIENT
  Age: 68 Year
  Sex: Male
  Weight: 89.81 kg

DRUGS (9)
  1. REVLIMID [Suspect]
     Indication: PLASMA CELL MYELOMA
     Route: 048
     Dates: start: 20120917
  2. ACYCLOVIR [Concomitant]
  3. COUMADIN [Concomitant]
  4. DEXAMETHASONE [Concomitant]
  5. HYDROCHLOROTHIAZIDE [Concomitant]
  6. LABETALOL HCL [Concomitant]
  7. ONDANSETRON HCL [Concomitant]
  8. PROCHLORPERAZINE MALEATE (PROCHLORPERAZINE MALEATE) [Concomitant]
  9. TAMSULOSIN HCL [Concomitant]

REACTIONS (2)
  - Fatigue [None]
  - Asthenia [None]
